FAERS Safety Report 4968837-8 (Version None)
Quarter: 2006Q2

REPORT INFORMATION
  Report Type: 
  Country: None (occurrence: None)
  Receive Date: 20060405
  Receipt Date: 20060322
  Transmission Date: 20061013
  Serious: Yes (Hospitalization)
  Sender: FDA-Public Use
  Company Number: 2006S1000050

PATIENT
  Age: 50 Year
  Sex: Female

DRUGS (5)
  1. CUBICIN [Suspect]
     Indication: OSTEOMYELITIS
     Dosage: 340 MG;Q24H;IV
     Route: 042
  2. RIFAMPIN [Suspect]
     Indication: OSTEOMYELITIS
     Dates: start: 20060101, end: 20060101
  3. VANCOMYCIN [Concomitant]
  4. RIFAMPIN [Concomitant]
  5. ROCEPHIN [Concomitant]

REACTIONS (5)
  - CHILLS [None]
  - EOSINOPHILIA [None]
  - PYREXIA [None]
  - RASH [None]
  - SKIN EXFOLIATION [None]
